FAERS Safety Report 14018699 (Version 1)
Quarter: 2017Q3

REPORT INFORMATION
  Report Type: Spontaneous
  Country: US (occurrence: US)
  Receive Date: 20170928
  Receipt Date: 20170928
  Transmission Date: 20171128
  Serious: Yes (Other)
  Sender: FDA-Public Use
  Company Number: US-PFIZER INC-2009248749

PATIENT
  Sex: Female

DRUGS (1)
  1. CELEBREX [Suspect]
     Active Substance: CELECOXIB
     Indication: ARTHRITIS
     Dosage: UNK
     Route: 048
     Dates: start: 20020101

REACTIONS (3)
  - Myocardial infarction [Unknown]
  - Ischaemic stroke [Unknown]
  - Renal failure [Unknown]

NARRATIVE: CASE EVENT DATE: 20020917
